FAERS Safety Report 13767299 (Version 1)
Quarter: 2017Q3

REPORT INFORMATION
  Report Type: Spontaneous
  Country: US (occurrence: US)
  Receive Date: 20170719
  Receipt Date: 20170719
  Transmission Date: 20171127
  Serious: Yes (Other)
  Sender: FDA-Public Use
  Company Number: None

PATIENT
  Age: 68 Year
  Sex: Female

DRUGS (10)
  1. CLARITIN [Concomitant]
     Active Substance: LORATADINE
  2. MULTIVITAMIN [Concomitant]
     Active Substance: VITAMINS
  3. MOBIC [Concomitant]
     Active Substance: MELOXICAM
  4. ACETAMIN [Concomitant]
     Active Substance: ACETAMINOPHEN
  5. OMEPRAZOLE. [Concomitant]
     Active Substance: OMEPRAZOLE
  6. LONSURF [Suspect]
     Active Substance: TIPIRACIL HYDROCHLORIDE\TRIFLURIDINE
     Indication: COLON CANCER
     Dosage: THREE 20MG TABLETS TWICE DAILY ORALLY
     Route: 048
     Dates: start: 20170223
  7. VITAMIN D3 [Concomitant]
     Active Substance: CHOLECALCIFEROL
  8. WELCHOL [Concomitant]
     Active Substance: COLESEVELAM HYDROCHLORIDE
  9. BISOPROLOL [Concomitant]
     Active Substance: BISOPROLOL
  10. LEVOTHYROXINE. [Concomitant]
     Active Substance: LEVOTHYROXINE

REACTIONS (5)
  - Alopecia [None]
  - Haemoglobin decreased [None]
  - Neutrophil count decreased [None]
  - Fatigue [None]
  - Transfusion [None]

NARRATIVE: CASE EVENT DATE: 2017
